FAERS Safety Report 5051304-3 (Version None)
Quarter: 2006Q3

REPORT INFORMATION
  Report Type: 
  Country: None (occurrence: None)
  Receive Date: 20060714
  Receipt Date: 20060706
  Transmission Date: 20061208
  Serious: Yes (Other)
  Sender: FDA-Public Use
  Company Number: FR-BRACCO-BRO-010310

PATIENT
  Sex: Female

DRUGS (1)
  1. MULTIHANCE [Suspect]
     Route: 042
     Dates: start: 20050725, end: 20050725

REACTIONS (2)
  - ANGIONEUROTIC OEDEMA [None]
  - URTICARIA GENERALISED [None]
